FAERS Safety Report 4753641-6 (Version None)
Quarter: 2005Q3

REPORT INFORMATION
  Report Type: 
  Country: None (occurrence: None)
  Receive Date: 20050824
  Receipt Date: 20050815
  Transmission Date: 20060218
  Serious: Yes (Other)
  Sender: FDA-Public Use
  Company Number: 2005103426

PATIENT
  Age: 39 Year
  Sex: Male

DRUGS (7)
  1. SORTIS (ATORVASTATIN) [Suspect]
     Indication: HYPERLIPIDAEMIA
     Dosage: 60 MG (1 IN 1 D), ORAL
     Route: 048
     Dates: start: 20050507, end: 20050715
  2. ASPIRIN [Concomitant]
  3. PLAVIX [Concomitant]
  4. EZETROL (EZETIMIBE) [Concomitant]
  5. TENORMIN [Concomitant]
  6. PANTOPRAZOLE SODIUM [Concomitant]
  7. ACETYLSALICYLIC ACID SRT [Concomitant]

REACTIONS (4)
  - ALANINE AMINOTRANSFERASE INCREASED [None]
  - ASPARTATE AMINOTRANSFERASE INCREASED [None]
  - BLOOD CREATINE PHOSPHOKINASE INCREASED [None]
  - MYOCARDIAL INFARCTION [None]
